FAERS Safety Report 21478580 (Version 2)
Quarter: 2022Q4

REPORT INFORMATION
  Report Type: Spontaneous
  Country: US (occurrence: US)
  Receive Date: 20221019
  Receipt Date: 20221111
  Transmission Date: 20230113
  Serious: No
  Sender: FDA-Public Use
  Company Number: US-BRISTOL-MYERS SQUIBB COMPANY-2022-122981

PATIENT
  Age: 66 Year
  Sex: Female
  Weight: 54.88 kg

DRUGS (2)
  1. REVLIMID [Suspect]
     Active Substance: LENALIDOMIDE
     Indication: Follicular lymphoma
     Dosage: DAILY FOR 21DAYS
     Route: 048
     Dates: start: 20220909
  2. REVLIMID [Suspect]
     Active Substance: LENALIDOMIDE
     Dosage: FREQUENCY- 3W, 1W OFF
     Route: 048
     Dates: start: 20221003

REACTIONS (2)
  - Rash [Unknown]
  - Pruritus [Unknown]
